FAERS Safety Report 9519755 (Version 1)
Quarter: 2013Q3

REPORT INFORMATION
  Report Type: Spontaneous
  Country: US (occurrence: None)
  Receive Date: 20130911
  Receipt Date: 20130911
  Transmission Date: 20140515
  Serious: No
  Sender: FDA-Public Use
  Company Number: None

PATIENT
  Age: 32 Year
  Sex: Female
  Weight: 93.8 kg

DRUGS (8)
  1. ISOVUE 300 [Suspect]
     Indication: PRIMARY MEDIASTINAL LARGE B-CELL LYMPHOMA
     Route: 042
     Dates: start: 20130613
  2. ISOVUE 300 [Suspect]
     Indication: CHRONIC MYELOID LEUKAEMIA
     Route: 042
     Dates: start: 20130613
  3. OXYCODONE [Concomitant]
  4. NILOTINIB [Concomitant]
  5. ONDANSETRON [Concomitant]
  6. LORAZEPAM [Concomitant]
  7. FISH OIL [Concomitant]
  8. VIT D3 [Concomitant]

REACTIONS (4)
  - Contrast media reaction [None]
  - Urticaria [None]
  - Feeling hot [None]
  - Erythema [None]
